FAERS Safety Report 7322939-X (Version None)
Quarter: 2011Q1

REPORT INFORMATION
  Report Type: 
  Country: None (occurrence: None)
  Receive Date: 20110301
  Receipt Date: 20110217
  Transmission Date: 20110831
  Serious: Yes (Other)
  Sender: FDA-Public Use
  Company Number: PHFR2011GB01392

PATIENT
  Sex: Male

DRUGS (1)
  1. CLOZARIL [Suspect]
     Indication: SCHIZOPHRENIA
     Dosage: UNK MG, UNK
     Route: 048
     Dates: start: 20100823

REACTIONS (6)
  - WHITE BLOOD CELL COUNT DECREASED [None]
  - VIRAL INFECTION [None]
  - FRACTURE [None]
  - MALAISE [None]
  - NEUTROPENIA [None]
  - NEUTROPHIL COUNT DECREASED [None]
